FAERS Safety Report 13337790 (Version 2)
Quarter: 2017Q2

REPORT INFORMATION
  Report Type: Spontaneous
  Country: US (occurrence: US)
  Receive Date: 20170315
  Receipt Date: 20170413
  Transmission Date: 20170830
  Serious: No
  Sender: FDA-Public Use
  Company Number: US-CELGENEUS-USA-2017032380

PATIENT
  Age: 83 Year
  Sex: Female
  Weight: 63.56 kg

DRUGS (1)
  1. REVLIMID [Suspect]
     Active Substance: LENALIDOMIDE
     Indication: PLASMA CELL MYELOMA
     Route: 048
     Dates: start: 201401

REACTIONS (4)
  - Herpes zoster [Recovering/Resolving]
  - Alopecia [Not Recovered/Not Resolved]
  - Pain of skin [Unknown]
  - Fatigue [Unknown]

NARRATIVE: CASE EVENT DATE: 201612
